FAERS Safety Report 10384761 (Version 6)
Quarter: 2015Q1

REPORT INFORMATION
  Report Type: Spontaneous
  Country: US (occurrence: US)
  Receive Date: 20140814
  Receipt Date: 20150209
  Transmission Date: 20150720
  Serious: Yes (Death, Hospitalization, Other)
  Sender: FDA-Public Use
  Company Number: US-009507513-1408USA007550

PATIENT
  Sex: Female
  Weight: 97.96 kg

DRUGS (3)
  1. VICTOZA [Suspect]
     Active Substance: LIRAGLUTIDE
     Indication: TYPE 2 DIABETES MELLITUS
     Dosage: 18MG/3ML, QD
     Dates: start: 201302, end: 201303
  2. BYETTA [Suspect]
     Active Substance: EXENATIDE
     Indication: TYPE 2 DIABETES MELLITUS
     Dosage: 5 MICROGRAM, QD
     Dates: start: 200907, end: 200908
  3. JANUVIA [Suspect]
     Active Substance: SITAGLIPTIN PHOSPHATE
     Indication: TYPE 2 DIABETES MELLITUS
     Dosage: 100 MG, QD
     Route: 048
     Dates: start: 20120114, end: 201301

REACTIONS (62)
  - Systemic lupus erythematosus [Unknown]
  - Leukocytosis [Unknown]
  - Electrocardiogram QRS complex prolonged [Unknown]
  - Anaemia [Unknown]
  - Cardiac failure acute [Unknown]
  - Diverticulitis [Unknown]
  - Lymphadenopathy [Unknown]
  - Dyspepsia [Unknown]
  - Antiphospholipid syndrome [Unknown]
  - Coagulation time prolonged [Unknown]
  - Bile duct stenosis [Unknown]
  - Acute myocardial infarction [Unknown]
  - Mitral valve incompetence [Unknown]
  - Sinus tachycardia [Unknown]
  - Hypercoagulation [Unknown]
  - Bronchitis chronic [Not Recovered/Not Resolved]
  - Cervical conisation [Unknown]
  - Oedema peripheral [Unknown]
  - Myocardial infarction [Unknown]
  - Cholecystectomy [Unknown]
  - Sepsis [Unknown]
  - Pneumonia [Unknown]
  - Bile duct stent insertion [Unknown]
  - Oesophageal discomfort [Unknown]
  - Gout [Unknown]
  - Knee arthroplasty [Unknown]
  - Precancerous mucosal lesion [Unknown]
  - Omental flap operation [Unknown]
  - Gastrooesophageal reflux disease [Unknown]
  - Irritable bowel syndrome [Unknown]
  - Deep vein thrombosis [Unknown]
  - Metastases to lymph nodes [Unknown]
  - Acute respiratory failure [Fatal]
  - Umbilical hernia repair [Unknown]
  - Candida test positive [Unknown]
  - Aortic valve incompetence [Unknown]
  - Hypertension [Unknown]
  - VIIth nerve paralysis [Unknown]
  - Osteoarthritis [Unknown]
  - Ductal adenocarcinoma of pancreas [Fatal]
  - International normalised ratio increased [Unknown]
  - Tricuspid valve incompetence [Unknown]
  - Malnutrition [Unknown]
  - Renal cyst [Unknown]
  - Large intestine polyp [Unknown]
  - Anxiety [Unknown]
  - Hysterectomy [Unknown]
  - Chronic obstructive pulmonary disease [Not Recovered/Not Resolved]
  - Cervix carcinoma [Unknown]
  - Lymphadenectomy [Unknown]
  - Ejection fraction decreased [Unknown]
  - Gallbladder disorder [Unknown]
  - Colon adenoma [Unknown]
  - Tonsillectomy [Unknown]
  - Cataract [Unknown]
  - Umbilical hernia [Unknown]
  - Pancreaticoduodenectomy [Unknown]
  - Gastroenterostomy [Unknown]
  - Hypotension [Unknown]
  - Cardiomyopathy [Unknown]
  - Colitis ischaemic [Unknown]
  - Renal infarct [Unknown]

NARRATIVE: CASE EVENT DATE: 20100722
